FAERS Safety Report 21477554 (Version 2)
Quarter: 2022Q4

REPORT INFORMATION
  Report Type: Spontaneous
  Country: US (occurrence: US)
  Receive Date: 20221019
  Receipt Date: 20221230
  Transmission Date: 20230113
  Serious: No
  Sender: FDA-Public Use
  Company Number: US-BRISTOL-MYERS SQUIBB COMPANY-2022-123596

PATIENT
  Age: 63 Year
  Sex: Male

DRUGS (3)
  1. SPRYCEL [Suspect]
     Active Substance: DASATINIB
     Indication: Chronic myeloid leukaemia
     Route: 048
     Dates: start: 20220806
  2. SPRYCEL [Suspect]
     Active Substance: DASATINIB
     Indication: Chronic myeloid leukaemia
     Route: 048
     Dates: start: 20220924
  3. SPRYCEL [Suspect]
     Active Substance: DASATINIB
     Indication: Osteoarthritis
     Route: 048
     Dates: start: 20220711

REACTIONS (4)
  - Nausea [Unknown]
  - Fatigue [Unknown]
  - Nausea [Unknown]
  - Faeces hard [Unknown]
